FAERS Safety Report 8491591 (Version 2)
Quarter: 2013Q1

REPORT INFORMATION
  Report Type: Spontaneous
  Country: TR (occurrence: TR)
  Receive Date: 20120403
  Receipt Date: 20130130
  Transmission Date: 20140127
  Serious: Yes (Hospitalization)
  Sender: FDA-Public Use
  Company Number: TR-PFIZER INC-2012079657

PATIENT
  Age: 44 Year
  Sex: Male

DRUGS (1)
  1. SILDENAFIL CITRATE [Suspect]
     Dosage: 150 MG, UNK

REACTIONS (2)
  - Incorrect dose administered [Unknown]
  - Acute myocardial infarction [Recovered/Resolved]
